FAERS Safety Report 7954953-5 (Version None)
Quarter: 2011Q4

REPORT INFORMATION
  Report Type: 
  Country: None (occurrence: None)
  Receive Date: 20111202
  Receipt Date: 20111201
  Transmission Date: 20120403
  Serious: Yes (Hospitalization)
  Sender: FDA-Public Use
  Company Number: IT-BAYER-2011-115733

PATIENT
  Age: 76 Year
  Sex: Male

DRUGS (3)
  1. ASPIRIN [Suspect]
     Indication: PROPHYLAXIS
     Dosage: 100 MG, QD
     Route: 048
     Dates: start: 20060101, end: 20111012
  2. STATIN [Concomitant]
  3. METOPROLOL TARTRATE [Concomitant]

REACTIONS (2)
  - CEREBRAL HAEMORRHAGE [None]
  - SOPOR [None]
